FAERS Safety Report 7927874-1 (Version None)
Quarter: 2011Q4

REPORT INFORMATION
  Report Type: 
  Country: None (occurrence: None)
  Receive Date: 20111118
  Receipt Date: 20111110
  Transmission Date: 20120403
  Serious: Yes (Hospitalization)
  Sender: FDA-Public Use
  Company Number: CA-JNJFOC-20110500585

PATIENT
  Sex: Female

DRUGS (10)
  1. BETA BLOCKER AGENT [Concomitant]
     Route: 048
  2. SEROQUEL [Concomitant]
     Route: 048
  3. STELARA [Suspect]
     Indication: PSORIASIS
     Route: 058
     Dates: start: 20100825
  4. VALSARTAN [Concomitant]
     Route: 048
  5. PAXIL [Concomitant]
     Route: 048
  6. VENTOLIN [Concomitant]
     Route: 055
  7. XALATAN [Concomitant]
     Route: 047
  8. LEVAQUIN [Concomitant]
     Route: 048
  9. FUROSEMIDE [Concomitant]
     Route: 048
  10. IMDUR [Concomitant]
     Route: 048

REACTIONS (1)
  - PNEUMONIA [None]
